FAERS Safety Report 18328521 (Version 1)
Quarter: 2020Q3

REPORT INFORMATION
  Report Type: Spontaneous
  Country: DE (occurrence: DE)
  Receive Date: 20200930
  Receipt Date: 20200930
  Transmission Date: 20201103
  Serious: Yes (Hospitalization)
  Sender: FDA-Public Use
  Company Number: DE-TEVA-2020-DE-1832901

PATIENT
  Age: 55 Year
  Sex: Female

DRUGS (4)
  1. MEROPENEM. [Suspect]
     Active Substance: MEROPENEM
     Indication: ANTIBIOTIC THERAPY
     Route: 065
  2. METAMIZOLE [Suspect]
     Active Substance: METAMIZOLE
     Indication: PAIN
  3. LINEZOLID. [Suspect]
     Active Substance: LINEZOLID
     Indication: ANTIBIOTIC THERAPY
     Route: 065
  4. METAMIZOLE [Suspect]
     Active Substance: METAMIZOLE
     Indication: ANALGESIC THERAPY
     Route: 065

REACTIONS (14)
  - Agranulocytosis [Recovered/Resolved]
  - Sepsis [Recovered/Resolved]
  - Fasciitis [Recovered/Resolved]
  - Pneumonia [Recovered/Resolved]
  - Device related infection [Recovered/Resolved]
  - Serratia infection [Recovered/Resolved]
  - Staphylococcal infection [Recovered/Resolved]
  - Escherichia infection [Recovered/Resolved]
  - Drug ineffective [Unknown]
  - Pancytopenia [Recovered/Resolved]
  - Atrial fibrillation [Unknown]
  - Candida infection [Recovered/Resolved]
  - Systemic infection [Recovered/Resolved]
  - Fungal infection [Recovered/Resolved]
